FAERS Safety Report 9090626 (Version 1)
Quarter: 2013Q1

REPORT INFORMATION
  Report Type: Report from Study
  Country: US (occurrence: US)
  Receive Date: 20130131
  Receipt Date: 20130131
  Transmission Date: 20140127
  Serious: No
  Sender: FDA-Public Use
  Company Number: US-ABBOTT-12P-163-1021998-00

PATIENT
  Age: 53 Year
  Sex: Female
  Weight: 149.82 kg

DRUGS (11)
  1. HUMIRA [Suspect]
     Indication: PSORIATIC ARTHROPATHY
     Route: 058
     Dates: start: 20121125
  2. ZIPSOR [Concomitant]
     Indication: PSORIATIC ARTHROPATHY
  3. CYMBALTA [Concomitant]
     Indication: PAIN
  4. PLAQUENIL [Concomitant]
     Indication: PSORIATIC ARTHROPATHY
  5. CYCLOBENZAPRINE [Concomitant]
     Indication: PSORIATIC ARTHROPATHY
  6. FOLIC ACID [Concomitant]
     Indication: PSORIATIC ARTHROPATHY
  7. LEFLUNOMIDE [Concomitant]
     Indication: PSORIATIC ARTHROPATHY
  8. METHOTREXATE [Concomitant]
     Indication: PSORIATIC ARTHROPATHY
  9. LISINOPRIL [Concomitant]
     Indication: HYPERTENSION
  10. METFORMIN [Concomitant]
     Indication: DIABETES MELLITUS
  11. ALBUTEROL [Concomitant]
     Indication: ASTHMA
     Dosage: INHALER

REACTIONS (7)
  - Malaise [Not Recovered/Not Resolved]
  - Fatigue [Not Recovered/Not Resolved]
  - Aphonia [Recovered/Resolved]
  - Back pain [Recovered/Resolved]
  - Productive cough [Not Recovered/Not Resolved]
  - Chest discomfort [Not Recovered/Not Resolved]
  - Pneumonia [Not Recovered/Not Resolved]
